FAERS Safety Report 13484204 (Version 1)
Quarter: 2017Q2

REPORT INFORMATION
  Report Type: Report from Study
  Country: US (occurrence: US)
  Receive Date: 20170426
  Receipt Date: 20170426
  Transmission Date: 20170830
  Serious: Yes (Hospitalization)
  Sender: FDA-Public Use
  Company Number: US-EISAI MEDICAL RESEARCH-EC-2017-024868

PATIENT
  Age: 60 Year
  Sex: Male
  Weight: 79 kg

DRUGS (11)
  1. AFINITOR [Concomitant]
     Active Substance: EVEROLIMUS
  2. TERAZOSIN [Concomitant]
     Active Substance: TERAZOSIN\TERAZOSIN HYDROCHLORIDE
  3. UREA. [Concomitant]
     Active Substance: UREA
  4. CLOBETASOL [Concomitant]
     Active Substance: CLOBETASOL
  5. LENVIMA [Suspect]
     Active Substance: LENVATINIB
     Indication: RENAL CELL CARCINOMA
     Route: 048
     Dates: start: 20161227, end: 201702
  6. PEROCET [Concomitant]
  7. LENVIMA [Suspect]
     Active Substance: LENVATINIB
     Route: 048
     Dates: start: 201702, end: 201704
  8. COLACE [Concomitant]
     Active Substance: DOCUSATE SODIUM
  9. BENAZEPRIL [Concomitant]
     Active Substance: BENAZEPRIL HYDROCHLORIDE
  10. CABOMETYX [Concomitant]
     Active Substance: CABOZANTINIB S-MALATE
  11. INLYTA [Concomitant]
     Active Substance: AXITINIB

REACTIONS (10)
  - Blood pressure increased [Recovering/Resolving]
  - Abdominal pain upper [Not Recovered/Not Resolved]
  - Stomatitis [Not Recovered/Not Resolved]
  - Hyperkeratosis [Not Recovered/Not Resolved]
  - Diarrhoea [Recovering/Resolving]
  - Pain in extremity [Not Recovered/Not Resolved]
  - Blood urine present [Recovering/Resolving]
  - Vomiting [Recovering/Resolving]
  - Flank pain [Unknown]
  - Abdominal discomfort [Not Recovered/Not Resolved]

NARRATIVE: CASE EVENT DATE: 201702
